FAERS Safety Report 15715552 (Version 2)
Quarter: 2019Q1

REPORT INFORMATION
  Report Type: Spontaneous
  Country: US (occurrence: US)
  Receive Date: 20181212
  Receipt Date: 20190124
  Transmission Date: 20190417
  Serious: No
  Sender: FDA-Public Use
  Company Number: US-BAUSCH-BL-2018-033788

PATIENT
  Age: 70 Year
  Sex: Female
  Weight: 59.47 kg

DRUGS (4)
  1. DESMOPRESSIN ACETATE NASAL SOLUTION 0.01% [Suspect]
     Active Substance: DESMOPRESSIN ACETATE
     Indication: DIABETES INSIPIDUS
     Route: 045
     Dates: start: 20180727, end: 20180801
  2. DESMOPRESSIN [Concomitant]
     Active Substance: DESMOPRESSIN
     Indication: PRODUCT USED FOR UNKNOWN INDICATION
     Route: 048
     Dates: start: 20180804, end: 20181128
  3. DESMOPRESSIN ACETATE NASAL SOLUTION 0.01% [Suspect]
     Active Substance: DESMOPRESSIN ACETATE
     Dosage: ONE SPRAY IN EACH NOSTRIL
     Route: 045
     Dates: start: 20181128, end: 20181129
  4. DESMOPRESSIN [Concomitant]
     Active Substance: DESMOPRESSIN
     Route: 048
     Dates: start: 20181129

REACTIONS (8)
  - Hot flush [Recovered/Resolved]
  - Product odour abnormal [Recovered/Resolved]
  - Nasal congestion [Recovered/Resolved]
  - Blood sodium decreased [Unknown]
  - Nausea [Recovered/Resolved]
  - Tremor [Recovered/Resolved]
  - Incorrect dose administered [Recovered/Resolved]
  - Chills [Recovered/Resolved]

NARRATIVE: CASE EVENT DATE: 2018
